FAERS Safety Report 9614000 (Version 1)
Quarter: 2013Q4

REPORT INFORMATION
  Report Type: Spontaneous
  Country: US (occurrence: US)
  Receive Date: 20131011
  Receipt Date: 20131011
  Transmission Date: 20140711
  Serious: No
  Sender: FDA-Public Use
  Company Number: US-B.I. PHARMACEUTICALS,INC./RIDGEFIELD-2013-BI-31082BP

PATIENT
  Age: 66 Year
  Sex: Female

DRUGS (3)
  1. ZANTAC (RANITIDINE HYDROCHLORIDE) [Suspect]
     Indication: DYSPEPSIA
     Dosage: 300 MG
     Route: 048
     Dates: start: 20131001
  2. ZANTAC (RANITIDINE HYDROCHLORIDE) [Suspect]
     Indication: DYSPEPSIA
  3. HUMALOG INSULIN PUMP [Concomitant]
     Indication: TYPE 1 DIABETES MELLITUS
     Dosage: FORM: SUBCUTANEOUS
     Route: 058

REACTIONS (1)
  - Blood glucose increased [Not Recovered/Not Resolved]
